FAERS Safety Report 12470602 (Version 3)
Quarter: 2017Q1

REPORT INFORMATION
  Report Type: Report from Study
  Country: CA (occurrence: CA)
  Receive Date: 20160616
  Receipt Date: 20170127
  Transmission Date: 20170428
  Serious: Yes (Hospitalization, Other)
  Sender: FDA-Public Use
  Company Number: CA-BEH-2016070313

PATIENT
  Age: 83 Year
  Sex: Female

DRUGS (1)
  1. HIZENTRA [Suspect]
     Active Substance: HUMAN IMMUNOGLOBULIN G
     Indication: PRIMARY IMMUNODEFICIENCY SYNDROME
     Dosage: 7 G, QW (2G EVERY 2 DAYS)
     Route: 058
     Dates: start: 20141023

REACTIONS (5)
  - Cerebrovascular accident [Recovered/Resolved]
  - Arthritis [Not Recovered/Not Resolved]
  - Breast cancer [Unknown]
  - Intestinal obstruction [Recovered/Resolved]
  - Muscular weakness [Recovered/Resolved]

NARRATIVE: CASE EVENT DATE: 2016
